FAERS Safety Report 4614190-9 (Version None)
Quarter: 2005Q1

REPORT INFORMATION
  Report Type: 
  Country: None (occurrence: None)
  Receive Date: 20050316
  Receipt Date: 20050304
  Transmission Date: 20050727
  Serious: No
  Sender: FDA-Public Use
  Company Number: 2005AP00610

PATIENT
  Age: 50 Year
  Sex: Female
  Weight: 52 kg

DRUGS (14)
  1. IRESSA [Suspect]
     Indication: LUNG NEOPLASM MALIGNANT
     Dosage: 250 MG DAILY PO
     Route: 048
     Dates: start: 20040715
  2. DUROTEP JANSSEN [Suspect]
     Indication: CANCER PAIN
     Dosage: 2.5 MG Q3D
     Dates: start: 20040709
  3. MEDICON [Concomitant]
  4. GASTER [Concomitant]
  5. ALEVIATIN [Concomitant]
  6. RIFAMPICIN [Concomitant]
  7. ESANBUTOL [Concomitant]
  8. KLARICID [Concomitant]
  9. VOLTAREN [Concomitant]
  10. OXYCONTIN [Concomitant]
  11. PRIMPERAN TAB [Concomitant]
  12. MAGNESIUM OXIDE [Concomitant]
  13. SELBEX [Concomitant]
  14. RADIATION THERAPY [Concomitant]

REACTIONS (1)
  - HYPERPHOSPHATASAEMIA [None]
